FAERS Safety Report 7219685-X (Version None)
Quarter: 2011Q1

REPORT INFORMATION
  Report Type: 
  Country: None (occurrence: None)
  Receive Date: 20110111
  Receipt Date: 20101229
  Transmission Date: 20110831
  Serious: Yes (Death, Hospitalization, Other)
  Sender: FDA-Public Use
  Company Number: PHHY2010BR90193

PATIENT
  Sex: Female

DRUGS (8)
  1. INTERFERON BETA-1B [Suspect]
     Indication: MULTIPLE SCLEROSIS
     Dosage: 8 MIU, QD
     Route: 058
     Dates: start: 20000101
  2. AMPLICTIL [Concomitant]
     Indication: MUSCLE RELAXANT THERAPY
     Dosage: 25 MG, UNK
     Dates: start: 20090401
  3. TRAMAL [Concomitant]
     Dosage: UNK
     Dates: start: 20080101
  4. FLUOXETINE [Concomitant]
     Dosage: 200 MG, TID
     Dates: start: 19990101
  5. METADON [Concomitant]
     Indication: PAIN
     Dosage: UNK
  6. DIAZEPAM [Concomitant]
     Dosage: 10 MG, BID
     Dates: start: 19940101
  7. TEGRETOL [Concomitant]
     Indication: DEPRESSION
     Dosage: 200 MG, UNK
     Dates: start: 20090201
  8. BACLOFEN [Concomitant]
     Indication: MUSCLE SPASMS
     Dosage: 10 MG, UNK
     Dates: start: 19990101

REACTIONS (28)
  - PROGRESSIVE MULTIPLE SCLEROSIS [None]
  - ARTHRALGIA [None]
  - SCAB [None]
  - PAIN [None]
  - IRRITABILITY [None]
  - DEPRESSION [None]
  - GAIT DISTURBANCE [None]
  - RESPIRATORY ARREST [None]
  - NECK PAIN [None]
  - DEPRESSED MOOD [None]
  - PNEUMONIA [None]
  - SUICIDAL IDEATION [None]
  - SENSORY LOSS [None]
  - MOVEMENT DISORDER [None]
  - LOCAL SWELLING [None]
  - MUSCLE SPASMS [None]
  - FAECAL INCONTINENCE [None]
  - CARDIAC ARREST [None]
  - COMA [None]
  - DECREASED APPETITE [None]
  - QUADRIPARESIS [None]
  - MULTI-ORGAN FAILURE [None]
  - MULTIPLE SCLEROSIS RELAPSE [None]
  - PAIN IN EXTREMITY [None]
  - NEURALGIA [None]
  - FATIGUE [None]
  - URINARY INCONTINENCE [None]
  - CRYING [None]
